FAERS Safety Report 14968319 (Version 1)
Quarter: 2018Q2

REPORT INFORMATION
  Report Type: Spontaneous
  Country: US (occurrence: US)
  Receive Date: 20180604
  Receipt Date: 20180604
  Transmission Date: 20180711
  Serious: Yes (Hospitalization)
  Sender: FDA-Public Use
  Company Number: US-STRIDES ARCOLAB LIMITED-2018SP002263

PATIENT

DRUGS (8)
  1. METRONIDAZOLE. [Suspect]
     Active Substance: METRONIDAZOLE
     Indication: PRODUCT USED FOR UNKNOWN INDICATION
     Dosage: UNK
     Route: 065
  2. HEPARIN [Concomitant]
     Active Substance: HEPARIN SODIUM
     Indication: PRODUCT USED FOR UNKNOWN INDICATION
     Dosage: UNK
     Route: 065
  3. WARFARIN [Interacting]
     Active Substance: WARFARIN
     Dosage: UNK
  4. DAPTOMYCIN. [Concomitant]
     Active Substance: DAPTOMYCIN
     Dosage: UNK
     Route: 065
  5. WARFARIN [Interacting]
     Active Substance: WARFARIN
     Dosage: 7.5 MG, DAILY (UNTILL DISCHARGE)
     Route: 065
  6. DAPTOMYCIN. [Concomitant]
     Active Substance: DAPTOMYCIN
     Indication: PRODUCT USED FOR UNKNOWN INDICATION
     Dosage: 1350MG (6 MG/KG) EVERY 48H
     Route: 042
  7. WARFARIN [Interacting]
     Active Substance: WARFARIN
     Indication: PRODUCT USED FOR UNKNOWN INDICATION
     Dosage: 7.5 MG, DAILY
     Route: 048
  8. WARFARIN [Interacting]
     Active Substance: WARFARIN
     Dosage: 7.5 MG, DAILY (ON DAY EIGHT)
     Route: 065

REACTIONS (2)
  - Drug interaction [Recovered/Resolved]
  - International normalised ratio increased [Recovered/Resolved]
